FAERS Safety Report 16805584 (Version 2)
Quarter: 2019Q4

REPORT INFORMATION
  Report Type: Spontaneous
  Country: GB (occurrence: GB)
  Receive Date: 20190913
  Receipt Date: 20191002
  Transmission Date: 20200122
  Serious: Yes (Other)
  Sender: FDA-Public Use
  Company Number: GB-PFIZER INC-2019388255

PATIENT
  Age: 49 Year
  Sex: Female

DRUGS (7)
  1. ENTRESTO [Suspect]
     Active Substance: SACUBITRIL\VALSARTAN
     Dosage: 200 MG, 2X/DAY
  2. ASPIRIN. [Suspect]
     Active Substance: ASPIRIN
     Dosage: 75 MG, 1X/DAY
  3. EPLERENONE. [Suspect]
     Active Substance: EPLERENONE
     Dosage: 25 MG, 1X/DAY
  4. GTN [Suspect]
     Active Substance: NITROGLYCERIN
     Dosage: UNK, AS NEEDED
  5. BUMETANIDE. [Suspect]
     Active Substance: BUMETANIDE
     Dosage: 1 MG, 1X/DAY
  6. ATORVASTATIN CALCIUM. [Suspect]
     Active Substance: ATORVASTATIN CALCIUM
     Dosage: 40 MG, UNK
  7. BISOPROLOL [Suspect]
     Active Substance: BISOPROLOL
     Dosage: 5 MG, 2X/DAY

REACTIONS (13)
  - Blood potassium abnormal [Unknown]
  - Left atrial dilatation [Unknown]
  - Renal impairment [Unknown]
  - Coronary artery disease [Unknown]
  - Heart valve incompetence [Unknown]
  - Ejection fraction abnormal [Unknown]
  - QRS axis abnormal [Unknown]
  - Ventricular dysfunction [Unknown]
  - Mitral valve incompetence [Unknown]
  - Blood creatinine abnormal [Unknown]
  - Blood urea abnormal [Unknown]
  - Glomerular filtration rate abnormal [Unknown]
  - Ischaemic cardiomyopathy [Unknown]
